FAERS Safety Report 8390705-2 (Version None)
Quarter: 2012Q2

REPORT INFORMATION
  Report Type: 
  Country: None (occurrence: None)
  Receive Date: 20120529
  Receipt Date: 20120523
  Transmission Date: 20120825
  Serious: Yes (Hospitalization)
  Sender: FDA-Public Use
  Company Number: PHHY2012US044332

PATIENT
  Age: 30 Year
  Sex: Male

DRUGS (10)
  1. FENTANYL [Suspect]
     Indication: ANAESTHESIA
     Dosage: 50 UG, UNK
  2. LIDOCAINE [Suspect]
     Indication: ANAESTHESIA
     Dosage: 100 MG, UNK
  3. LIDOCAINE [Suspect]
     Dosage: 100 MG, UNK
  4. HYDROCODONE BITARTRATE + ACETAMINOPHEN [Concomitant]
     Indication: FACIAL BONES FRACTURE
  5. SEVOFLURANE [Suspect]
     Indication: GENERAL ANAESTHESIA
  6. MIDAZOLAM [Suspect]
     Indication: ANAESTHESIA
     Dosage: 2 MG, UNK
  7. PROPOFOL [Suspect]
     Indication: ANAESTHESIA
     Dosage: 150 MG, UNK
  8. SUCCINYLCHOLINE CHLORIDE [Suspect]
     Indication: ANAESTHESIA
  9. CYCLOBENAZPRINE [Concomitant]
     Indication: MUSCLE SPASMS
     Dosage: 10 MG, TID
  10. SERTRALINE HYDROCHLORIDE [Concomitant]
     Indication: DEPRESSION
     Dosage: 100 MG, DAILY

REACTIONS (9)
  - VENTRICULAR FIBRILLATION [None]
  - CYANOSIS [None]
  - HYPOXIA [None]
  - EXTRASYSTOLES [None]
  - CARDIAC FAILURE [None]
  - VENTRICULAR EXTRASYSTOLES [None]
  - VENTRICULAR TACHYCARDIA [None]
  - STRESS CARDIOMYOPATHY [None]
  - LEFT VENTRICULAR DYSFUNCTION [None]
